FAERS Safety Report 4886210-8 (Version None)
Quarter: 2006Q1

REPORT INFORMATION
  Report Type: 
  Country: None (occurrence: None)
  Receive Date: 20060118
  Receipt Date: 20060118
  Transmission Date: 20060701
  Serious: Yes (Hospitalization)
  Sender: FDA-Public Use
  Company Number: None

PATIENT
  Age: 61 Year
  Sex: Female

DRUGS (6)
  1. IBUPROFEN [Suspect]
     Indication: BACK PAIN
     Dosage: 2 G DAILY
  2. VERAPAMIL [Concomitant]
  3. HYDROCHLOROTHIAZIDE [Concomitant]
  4. WELLBUTRIN [Concomitant]
  5. AMITRIPTYLINE HCL [Concomitant]
  6. LIPITOR [Concomitant]

REACTIONS (7)
  - ABDOMINAL PAIN [None]
  - DIZZINESS [None]
  - DYSPNOEA [None]
  - FATIGUE [None]
  - NAUSEA [None]
  - PEPTIC ULCER [None]
  - TACHYCARDIA [None]
